FAERS Safety Report 11807097 (Version 9)
Quarter: 2017Q2

REPORT INFORMATION
  Report Type: Report from Study
  Country: CA (occurrence: CA)
  Receive Date: 20151207
  Receipt Date: 20170504
  Transmission Date: 20170829
  Serious: Yes (Hospitalization, Other)
  Sender: FDA-Public Use
  Company Number: CA-TAKEDA-2015TUS014747

PATIENT
  Age: 46 Year
  Sex: Female

DRUGS (24)
  1. VANCOMYCIN HYDROCHLORIDE. [Suspect]
     Active Substance: VANCOMYCIN HYDROCHLORIDE
     Indication: ABSCESS
     Dosage: UNK
     Route: 042
     Dates: start: 20150914, end: 20150916
  2. PLAQUENIL                          /00072602/ [Concomitant]
     Active Substance: HYDROXYCHLOROQUINE DIPHOSPHATE
     Dosage: 200 MG, BID
     Route: 048
  3. STEMETIL                           /00013301/ [Concomitant]
     Active Substance: PROCHLORPERAZINE
     Indication: PREMEDICATION
     Dosage: 10 MG, UNK
  4. CARDIZEM [Concomitant]
     Active Substance: DILTIAZEM HYDROCHLORIDE
     Dosage: 180 MG, QD
  5. PLAQUENIL                          /00072602/ [Concomitant]
     Active Substance: HYDROXYCHLOROQUINE DIPHOSPHATE
     Dosage: 200 MG, 3/WEEK
     Route: 048
  6. DILAUDID [Concomitant]
     Active Substance: HYDROMORPHONE HYDROCHLORIDE
     Dosage: 1 MG, UNK
  7. VITAMIN D [Concomitant]
     Active Substance: CHOLECALCIFEROL
     Dosage: UNK
  8. PANTOLOC [Suspect]
     Active Substance: PANTOPRAZOLE SODIUM
     Indication: PRODUCT USED FOR UNKNOWN INDICATION
     Dosage: 40 MG, QD
     Route: 065
     Dates: start: 20150101
  9. APO-CEPHALEX [Suspect]
     Active Substance: CEPHALEXIN
     Indication: ABSCESS
     Dosage: UNK
     Route: 065
  10. FRAGMIN [Suspect]
     Active Substance: DALTEPARIN SODIUM
     Indication: PHLEBITIS
  11. IMOVAN [Concomitant]
     Active Substance: ZOPICLONE
     Dosage: 7.5 MG, UNK
  12. ERGOCALCIFEROL. [Concomitant]
     Active Substance: ERGOCALCIFEROL
     Dosage: UNK
  13. VEDOLIZUMAB [Suspect]
     Active Substance: VEDOLIZUMAB
     Indication: COLITIS ULCERATIVE
     Dosage: 300 MG, UNK
     Route: 042
     Dates: start: 20150821
  14. PREDNISONE. [Suspect]
     Active Substance: PREDNISONE
     Indication: PRODUCT USED FOR UNKNOWN INDICATION
     Dosage: 4 MG, QD
     Route: 048
  15. ANCEF [Suspect]
     Active Substance: CEFAZOLIN SODIUM
     Indication: ABSCESS
     Dosage: 2 G, QD
     Route: 042
     Dates: start: 20150916
  16. KETOLEX [Suspect]
     Active Substance: KETOROLAC TROMETHAMINE
     Indication: ABSCESS
     Dosage: 500 MG, QID
     Route: 048
     Dates: start: 20150918, end: 20151002
  17. PLAQUENIL                          /00072602/ [Concomitant]
     Active Substance: HYDROXYCHLOROQUINE DIPHOSPHATE
     Dosage: 400 MG, UNK
     Route: 048
  18. VENOFER [Suspect]
     Active Substance: IRON SUCROSE
     Indication: ABSCESS
     Dosage: UNK, Q2WEEKS
     Route: 042
     Dates: start: 201409
  19. CEFTRIAXONE. [Suspect]
     Active Substance: CEFTRIAXONE
     Indication: ABSCESS
     Dosage: 2 G, QD
     Route: 042
     Dates: start: 20150913, end: 20150916
  20. FRAGMIN [Suspect]
     Active Substance: DALTEPARIN SODIUM
     Indication: DEEP VEIN THROMBOSIS
     Dosage: 15000 UNITS, QD
     Route: 058
  21. SALOFALK                           /00000301/ [Concomitant]
     Active Substance: MESALAMINE
     Dosage: 8 DF, QD
  22. METHOTREXATE. [Concomitant]
     Active Substance: METHOTREXATE
     Indication: SYSTEMIC LUPUS ERYTHEMATOSUS
     Dosage: 10 MG, 1/WEEK
     Route: 058
     Dates: start: 20150908
  23. SALOFALK                           /00000301/ [Concomitant]
     Active Substance: MESALAMINE
     Dosage: UNK, QD
     Dates: start: 201501, end: 201503
  24. ACTONEL [Concomitant]
     Active Substance: RISEDRONATE SODIUM
     Dosage: UNK
     Route: 065

REACTIONS (17)
  - Erythema nodosum [Unknown]
  - Infusion site oedema [Unknown]
  - Wound [Unknown]
  - Erythema [Unknown]
  - Diarrhoea haemorrhagic [Recovered/Resolved]
  - Haematoma [Unknown]
  - Abscess limb [Recovered/Resolved]
  - Infusion site pain [Unknown]
  - Tooth abscess [Recovered/Resolved]
  - Abscess [Unknown]
  - Breast abscess [Unknown]
  - Burning sensation [Recovered/Resolved]
  - Colitis ulcerative [Recovered/Resolved]
  - Abscess limb [Unknown]
  - Infusion site warmth [Unknown]
  - Infusion site erythema [Unknown]
  - Secretion discharge [Unknown]

NARRATIVE: CASE EVENT DATE: 2015
